FAERS Safety Report 9863988 (Version 5)
Quarter: 2014Q3

REPORT INFORMATION
  Report Type: Report from Study
  Country: BR (occurrence: BR)
  Receive Date: 20140203
  Receipt Date: 20140827
  Transmission Date: 20150326
  Serious: Yes (Hospitalization, Other)
  Sender: FDA-Public Use
  Company Number: PHHY2014BR011425

PATIENT
  Age: 83 Year
  Sex: Male
  Weight: 62 kg

DRUGS (10)
  1. EXJADE [Suspect]
     Active Substance: DEFERASIROX
     Dosage: UNK UKN, UNK
     Route: 048
  2. CARVEDILOL. [Suspect]
     Active Substance: CARVEDILOL
     Indication: ARRHYTHMIA
     Dosage: UNK UKN, UNK
  3. EXJADE [Suspect]
     Active Substance: DEFERASIROX
     Indication: MYELODYSPLASTIC SYNDROME
     Dosage: 4 DF, UNK
     Route: 048
  4. AMIODARONE [Suspect]
     Active Substance: AMIODARONE
     Indication: ARRHYTHMIA
     Dosage: UNK UKN, UNK
  5. HYDROCHLOROTHIAZIDE. [Concomitant]
     Active Substance: HYDROCHLOROTHIAZIDE
     Dosage: UNK UKN, UNK
  6. OMEPRAZOLE. [Concomitant]
     Active Substance: OMEPRAZOLE
     Dosage: UNK UKN, UNK
  7. EXJADE [Suspect]
     Active Substance: DEFERASIROX
     Dosage: 2 DF, DAILY
  8. EXJADE [Suspect]
     Active Substance: DEFERASIROX
     Dosage: 2 DF, QD (IN THE MORNING)
     Route: 048
  9. EXJADE [Suspect]
     Active Substance: DEFERASIROX
     Dosage: 3 DF, DAILY
     Route: 048
  10. LEVOTHYROXINE [Concomitant]
     Active Substance: LEVOTHYROXINE
     Indication: HYPOTHYROIDISM
     Dosage: UNK UKN, UNK

REACTIONS (9)
  - Haemoglobin decreased [Recovering/Resolving]
  - Femur fracture [Recovering/Resolving]
  - Constipation [Recovering/Resolving]
  - Dyspnoea [Recovering/Resolving]
  - Heart rate decreased [Recovering/Resolving]
  - Hypertension [Recovering/Resolving]
  - Syncope [Recovering/Resolving]
  - Osteoporosis [Unknown]
  - Gastric disorder [Recovering/Resolving]

NARRATIVE: CASE EVENT DATE: 201307
